FAERS Safety Report 25813144 (Version 2)
Quarter: 2025Q4

REPORT INFORMATION
  Report Type: Spontaneous
  Country: US (occurrence: US)
  Receive Date: 20250917
  Receipt Date: 20251017
  Transmission Date: 20260118
  Serious: Yes (Other)
  Sender: ELI LILLY AND COMPANY
  Company Number: US-ELI_LILLY_AND_COMPANY-US202509011659

PATIENT
  Age: 29 Year
  Sex: Male

DRUGS (7)
  1. PROZAC [Suspect]
     Active Substance: FLUOXETINE HYDROCHLORIDE
     Indication: Autism spectrum disorder
     Dosage: 60 MG, DAILY
     Route: 065
  2. PROZAC [Suspect]
     Active Substance: FLUOXETINE HYDROCHLORIDE
     Indication: Seizure
     Dosage: INCREASED DOSE
     Route: 065
  3. PROZAC [Suspect]
     Active Substance: FLUOXETINE HYDROCHLORIDE
     Indication: Epilepsy
     Dosage: LOWERED DOSE
     Route: 065
  4. PROZAC [Suspect]
     Active Substance: FLUOXETINE HYDROCHLORIDE
     Indication: Dyspnoea
     Dosage: RAISED BACK UP
     Route: 065
  5. PROZAC [Suspect]
     Active Substance: FLUOXETINE HYDROCHLORIDE
     Indication: Cortisol abnormal
     Dosage: 20 MG, DAILY
     Route: 065
  6. PROZAC [Suspect]
     Active Substance: FLUOXETINE HYDROCHLORIDE
     Dosage: 10 MG, DAILY
     Route: 065
  7. PROZAC [Suspect]
     Active Substance: FLUOXETINE HYDROCHLORIDE
     Dosage: 20 MG, DAILY
     Route: 065

REACTIONS (11)
  - Cushing^s syndrome [Unknown]
  - Seizure [Unknown]
  - Anger [Unknown]
  - Sleep-related breathing disorder [Unknown]
  - Dyspnoea [Unknown]
  - Brain fog [Unknown]
  - Mania [Unknown]
  - Hypersomnia [Unknown]
  - Insomnia [Unknown]
  - Asthenia [Unknown]
  - Off label use [Unknown]
